FAERS Safety Report 13566580 (Version 1)
Quarter: 2017Q2

REPORT INFORMATION
  Report Type: Spontaneous
  Country: AU (occurrence: AU)
  Receive Date: 20170522
  Receipt Date: 20170522
  Transmission Date: 20170830
  Serious: Yes (Other)
  Sender: FDA-Public Use
  Company Number: AU-AMGEN-AUSSP2017074547

PATIENT
  Age: 36 Year
  Sex: Female

DRUGS (2)
  1. XGEVA [Suspect]
     Active Substance: DENOSUMAB
     Indication: BREAST CANCER METASTATIC
     Dosage: UNK UNK, QMO
     Route: 065
  2. PALBOCICLIB [Concomitant]
     Active Substance: PALBOCICLIB

REACTIONS (10)
  - Bone pain [Unknown]
  - Fatigue [Unknown]
  - Oophorectomy bilateral [Unknown]
  - Back pain [Unknown]
  - Dyspnoea [Unknown]
  - Breast cancer [Unknown]
  - Metastases to spine [Unknown]
  - Memory impairment [Unknown]
  - Insomnia [Unknown]
  - Arthralgia [Unknown]

NARRATIVE: CASE EVENT DATE: 2013
